FAERS Safety Report 23492149 (Version 1)
Quarter: 2024Q1

REPORT INFORMATION
  Report Type: Spontaneous
  Country: FR (occurrence: FR)
  Receive Date: 20240207
  Receipt Date: 20240207
  Transmission Date: 20240410
  Serious: Yes (Hospitalization)
  Sender: FDA-Public Use
  Company Number: None

PATIENT
  Age: 73 Year
  Sex: Male
  Weight: 67 kg

DRUGS (11)
  1. GABAPENTIN [Suspect]
     Active Substance: GABAPENTIN
     Indication: Sexually inappropriate behaviour
     Route: 048
     Dates: start: 20230821, end: 20231114
  2. GABAPENTIN [Suspect]
     Active Substance: GABAPENTIN
     Indication: Sexually inappropriate behaviour
     Route: 048
     Dates: start: 20231114
  3. GONADORELIN [Suspect]
     Active Substance: GONADORELIN
     Indication: Sexually inappropriate behaviour
     Dosage: POWDER AND SOLVENT FOR SUSPENSION FOR INJECTION (IM) SUSTAINED RELEASE FORM OVER 3 MONTHS SUSTAIN...
     Route: 030
     Dates: start: 20230811, end: 20230811
  4. LOVENOX [Concomitant]
     Active Substance: ENOXAPARIN SODIUM
     Indication: Thrombosis prophylaxis
     Dosage: 4,000 IU ANTI-XA/0.4 ML,
     Route: 058
  5. PREDNISONE [Concomitant]
     Active Substance: PREDNISONE
     Indication: Rheumatoid arthritis
     Route: 048
  6. POTASSIUM CHLORIDE [Concomitant]
     Active Substance: POTASSIUM CHLORIDE
     Indication: Hypokalaemia
     Route: 048
  7. IMOVANE [Concomitant]
     Active Substance: ZOPICLONE
     Indication: Insomnia
     Route: 048
  8. METHOTREXATE SODIUM [Suspect]
     Active Substance: METHOTREXATE SODIUM
     Indication: Rheumatoid arthritis
     Dosage: 15 MG/0.30 ML,
     Route: 058
     Dates: start: 2019, end: 20231114
  9. CYPROTERONE ACETATE [Suspect]
     Active Substance: CYPROTERONE ACETATE
     Indication: Sexually inappropriate behaviour
     Route: 048
     Dates: start: 20230811, end: 20230821
  10. CYPROTERONE ACETATE [Suspect]
     Active Substance: CYPROTERONE ACETATE
     Indication: Sexually inappropriate behaviour
     Route: 048
     Dates: start: 20230821, end: 20231114
  11. MELATONIN [Concomitant]
     Active Substance: MELATONIN
     Indication: Insomnia
     Route: 048

REACTIONS (1)
  - Pancytopenia [Recovering/Resolving]

NARRATIVE: CASE EVENT DATE: 20231113
